FAERS Safety Report 6691477-X (Version None)
Quarter: 2010Q2

REPORT INFORMATION
  Report Type: 
  Country: None (occurrence: None)
  Receive Date: 20100419
  Receipt Date: 20100408
  Transmission Date: 20101027
  Serious: Yes (Other)
  Sender: FDA-Public Use
  Company Number: 1000013226

PATIENT

DRUGS (1)
  1. ESCITALOPRAM [Suspect]
     Dates: start: 20100402

REACTIONS (3)
  - DEPRESSED MOOD [None]
  - FEELING ABNORMAL [None]
  - RESTLESSNESS [None]
